FAERS Safety Report 5450684-4 (Version None)
Quarter: 2007Q3

REPORT INFORMATION
  Report Type: 
  Country: None (occurrence: None)
  Receive Date: 20070910
  Receipt Date: 20070901
  Transmission Date: 20080115
  Serious: Yes (Hospitalization)
  Sender: FDA-Public Use
  Company Number: 2007SP017695

PATIENT
  Age: 42 Year
  Sex: Female

DRUGS (2)
  1. PEG-INTRON [Suspect]
     Indication: HEPATITIS C
     Dosage: ; SC
     Route: 058
     Dates: start: 20070429
  2. RIBAVIRIN [Suspect]
     Indication: HEPATITIS C
     Dosage: ; PO
     Route: 048
     Dates: start: 20070429

REACTIONS (9)
  - ASTHENIA [None]
  - CHEST PAIN [None]
  - CHOLELITHIASIS [None]
  - DRY SKIN [None]
  - ERYTHEMA [None]
  - MALAISE [None]
  - SENSATION OF HEAVINESS [None]
  - THROAT IRRITATION [None]
  - WHITE BLOOD CELL COUNT DECREASED [None]
